FAERS Safety Report 5187253-X (Version None)
Quarter: 2006Q4

REPORT INFORMATION
  Report Type: 
  Country: None (occurrence: None)
  Receive Date: 20061220
  Receipt Date: 20060923
  Transmission Date: 20070319
  Serious: No
  Sender: FDA-Public Use
  Company Number: US-AMGEN-US194679

PATIENT
  Sex: Male

DRUGS (2)
  1. ENBREL [Suspect]
     Indication: PSORIASIS
     Route: 058
     Dates: start: 20060528
  2. METHOTREXATE [Concomitant]
     Route: 048
     Dates: start: 20060401

REACTIONS (5)
  - CHILLS [None]
  - EAR CONGESTION [None]
  - HEADACHE [None]
  - HYPERHIDROSIS [None]
  - UPPER RESPIRATORY TRACT INFECTION [None]
